FAERS Safety Report 24856728 (Version 5)
Quarter: 2025Q2

REPORT INFORMATION
  Report Type: Spontaneous
  Country: US (occurrence: US)
  Receive Date: 20250117
  Receipt Date: 20250616
  Transmission Date: 20250716
  Serious: Yes (Other)
  Sender: PFIZER
  Company Number: US-PFIZER INC-202500010059

PATIENT
  Age: 69 Year
  Sex: Female

DRUGS (2)
  1. GENOTROPIN [Suspect]
     Active Substance: SOMATROPIN
  2. GENOTROPIN [Suspect]
     Active Substance: SOMATROPIN
     Dosage: 0.2 MG, DAILY

REACTIONS (6)
  - Cataract [Unknown]
  - Eye discharge [Unknown]
  - Cough [Unknown]
  - Muscular weakness [Unknown]
  - Abdominal pain [Unknown]
  - Pain [Unknown]
